FAERS Safety Report 24281021 (Version 1)
Quarter: 2024Q3

REPORT INFORMATION
  Report Type: Spontaneous
  Country: GB (occurrence: GB)
  Receive Date: 20240904
  Receipt Date: 20240904
  Transmission Date: 20241017
  Serious: Yes (Other)
  Sender: TEVA
  Company Number: None

PATIENT
  Age: 55 Year
  Sex: Male

DRUGS (1)
  1. AMLODIPINE [Suspect]
     Active Substance: AMLODIPINE BESYLATE
     Indication: Hypertension
     Dosage: 5MG
     Route: 065

REACTIONS (4)
  - Joint swelling [Recovering/Resolving]
  - Constipation [Recovered/Resolved]
  - Haemorrhage [Recovering/Resolving]
  - Anxiety [Recovering/Resolving]
